FAERS Safety Report 5855061-X (Version None)
Quarter: 2008Q3

REPORT INFORMATION
  Report Type: 
  Country: None (occurrence: None)
  Receive Date: 20080822
  Receipt Date: 20080630
  Transmission Date: 20090109
  Serious: No
  Sender: FDA-Public Use
  Company Number: US-ABBOTT-08P-163-0456627-00

PATIENT
  Sex: Female
  Weight: 66.738 kg

DRUGS (2)
  1. SYNTHROID [Suspect]
     Indication: THYROIDECTOMY
     Route: 048
  2. SYNTHROID [Suspect]
     Indication: THYROID CANCER
     Route: 048

REACTIONS (2)
  - ALLERGY TO CHEMICALS [None]
  - RASH [None]
